FAERS Safety Report 12724261 (Version 3)
Quarter: 2016Q4

REPORT INFORMATION
  Report Type: Spontaneous
  Country: JP (occurrence: JP)
  Receive Date: 20160908
  Receipt Date: 20161013
  Transmission Date: 20170207
  Serious: Yes (Hospitalization, Disabling)
  Sender: FDA-Public Use
  Company Number: JP-PFIZER INC-2016409224

PATIENT
  Age: 67 Year
  Sex: Male
  Weight: 61.9 kg

DRUGS (1)
  1. SUTENT [Suspect]
     Active Substance: SUNITINIB MALATE
     Indication: METASTATIC RENAL CELL CARCINOMA
     Dosage: 25 MG, CYCLIC (TWO-WEEK TREATMENT PERIOD FOLLOWED BY A ONE-WEEK DRUG REST PERIOD)
     Route: 048
     Dates: start: 20160808, end: 20160821

REACTIONS (4)
  - Platelet count decreased [Unknown]
  - Myopathy [Unknown]
  - Blood creatine phosphokinase increased [Unknown]
  - Monoplegia [Not Recovered/Not Resolved]

NARRATIVE: CASE EVENT DATE: 201608
